FAERS Safety Report 18547559 (Version 2)
Quarter: 2020Q4

REPORT INFORMATION
  Report Type: Spontaneous
  Country: BR (occurrence: BR)
  Receive Date: 20201125
  Receipt Date: 20201201
  Transmission Date: 20210114
  Serious: Yes (Other)
  Sender: FDA-Public Use
  Company Number: BR-PFIZER INC-2020462818

PATIENT
  Age: 38 Year
  Sex: Female

DRUGS (3)
  1. RELVAR [Concomitant]
     Active Substance: FLUTICASONE FUROATE\VILANTEROL TRIFENATATE
     Dosage: UNK
     Dates: start: 201908
  2. PRISTIQ EXTENDED-RELEASE [Suspect]
     Active Substance: DESVENLAFAXINE SUCCINATE
     Indication: DEPRESSION
     Dosage: 50 MG, 1X/DAY
     Dates: start: 20200917, end: 20201101
  3. METFORMIN [Concomitant]
     Active Substance: METFORMIN HYDROCHLORIDE
     Dosage: UNK
     Dates: start: 2015

REACTIONS (5)
  - Constipation [Recovered/Resolved]
  - Epistaxis [Recovered/Resolved]
  - Haemorrhoid infection [Recovered/Resolved]
  - Headache [Recovered/Resolved]
  - Proctalgia [Recovered/Resolved]

NARRATIVE: CASE EVENT DATE: 2020
